FAERS Safety Report 16866579 (Version 1)
Quarter: 2019Q3

REPORT INFORMATION
  Report Type: Spontaneous
  Country: US (occurrence: US)
  Receive Date: 20190930
  Receipt Date: 20190930
  Transmission Date: 20191005
  Serious: No
  Sender: FDA-Public Use
  Company Number: US-ALLERGAN-1937453US

PATIENT
  Age: 18 Year
  Sex: Female

DRUGS (1)
  1. VRAYLAR [Suspect]
     Active Substance: CARIPRAZINE
     Indication: BIPOLAR DISORDER
     Dosage: UNK
     Dates: start: 201908

REACTIONS (8)
  - Agitation [Unknown]
  - Constipation [Unknown]
  - Restlessness [Unknown]
  - Abdominal pain [Unknown]
  - Middle insomnia [Unknown]
  - Back pain [Unknown]
  - Pain in extremity [Unknown]
  - Dyspepsia [Unknown]
